FAERS Safety Report 15556009 (Version 1)
Quarter: 2018Q4

REPORT INFORMATION
  Report Type: Report from Study
  Country: US (occurrence: US)
  Receive Date: 20181026
  Receipt Date: 20181026
  Transmission Date: 20190205
  Serious: No
  Sender: FDA-Public Use
  Company Number: PHEH2018US044693

PATIENT
  Sex: Female

DRUGS (1)
  1. ENTRESTO [Suspect]
     Active Substance: SACUBITRIL\VALSARTAN
     Indication: CARDIAC FAILURE CHRONIC
     Route: 048

REACTIONS (6)
  - Viral infection [Unknown]
  - Dyspnoea [Unknown]
  - Blood glucose decreased [Unknown]
  - Pain [Unknown]
  - Blood pressure abnormal [Unknown]
  - Flatulence [Unknown]
